FAERS Safety Report 14595150 (Version 2)
Quarter: 2020Q1

REPORT INFORMATION
  Report Type: Spontaneous
  Country: US (occurrence: US)
  Receive Date: 20180302
  Receipt Date: 20200303
  Transmission Date: 20200409
  Serious: Yes (Other)
  Sender: FDA-Public Use
  Company Number: US-AKORN PHARMACEUTICALS-2017AKN00272

PATIENT
  Age: 16 Year
  Sex: Male
  Weight: 61.22 kg

DRUGS (5)
  1. VITAMIN C [Concomitant]
     Active Substance: ASCORBIC ACID
     Dosage: 500 MG, 1X/DAY
  2. MYORISAN [Suspect]
     Active Substance: ISOTRETINOIN
     Indication: ACNE
     Dosage: 40 MG, 1X/DAY
     Dates: start: 20161025, end: 20161115
  3. MYORISAN [Suspect]
     Active Substance: ISOTRETINOIN
     Indication: ACNE CYSTIC
     Dosage: 40 MG, 1X/DAY ^ON ODD^
     Dates: start: 20161115, end: 20170227
  4. MYORISAN [Suspect]
     Active Substance: ISOTRETINOIN
     Indication: SCAR
     Dosage: 40 MG, 1X/DAY ^ON EVEN DAYS^
     Dates: start: 20161115, end: 20170227
  5. VITAMIN D [Concomitant]
     Active Substance: VITAMIN D NOS
     Dosage: 800 MG, 1X/DAY

REACTIONS (3)
  - Papilloedema [Unknown]
  - Headache [Recovering/Resolving]
  - Back pain [Not Recovered/Not Resolved]

NARRATIVE: CASE EVENT DATE: 201701
